FAERS Safety Report 18483690 (Version 1)
Quarter: 2020Q4

REPORT INFORMATION
  Report Type: Spontaneous
  Country: DE (occurrence: DE)
  Receive Date: 20201110
  Receipt Date: 20201110
  Transmission Date: 20210114
  Serious: Yes (Death, Other)
  Sender: FDA-Public Use
  Company Number: DE-MICRO LABS LIMITED-ML2020-03314

PATIENT
  Age: 27 Year
  Sex: Male

DRUGS (14)
  1. METHIOPROPAMINE [Suspect]
     Active Substance: METHIOPROPAMINE
  2. DELORAZEPAM [Suspect]
     Active Substance: DELORAZEPAM
  3. LORMETAZEPAM [Suspect]
     Active Substance: LORMETAZEPAM
  4. DIPHENHYDRAMINE HYDROCHLORIDE. [Suspect]
     Active Substance: DIPHENHYDRAMINE HYDROCHLORIDE
  5. LORAZEPAM. [Suspect]
     Active Substance: LORAZEPAM
  6. DICLAZEPAM [Suspect]
     Active Substance: 2-CHLORODIAZEPAM
  7. METHIOPROPAMINE [Suspect]
     Active Substance: METHIOPROPAMINE
  8. 2-FA (2-FLUOROAMPHETAMINE) [Suspect]
     Active Substance: 2-FLUOROAMPHETAMINE
  9. CAFFEINE CITRATE. [Suspect]
     Active Substance: CAFFEINE CITRATE
  10. PYRAZOLAM [Suspect]
     Active Substance: PYRAZOLAM
  11. ALCOHOL. [Suspect]
     Active Substance: ALCOHOL
  12. 3-FLUOROPHENMETRAZINE (3-FPM) [Suspect]
     Active Substance: 3-FLUOROPHENMETRAZINE
  13. 2-FMA (2-FLUOROMETHAMPHETAMINE) [Suspect]
     Active Substance: 2-FLUOROMETHAMPHETAMINE
  14. AMPHETAMINE [Suspect]
     Active Substance: AMPHETAMINE

REACTIONS (3)
  - Drug abuse [Unknown]
  - Toxicity to various agents [Fatal]
  - Asphyxia [Fatal]
